FAERS Safety Report 23892144 (Version 1)
Quarter: 2024Q2

REPORT INFORMATION
  Report Type: Spontaneous
  Country: US (occurrence: None)
  Receive Date: 20240524
  Receipt Date: 20240524
  Transmission Date: 20240716
  Serious: No
  Sender: FDA-Public Use
  Company Number: US-ROCHE-3486737

PATIENT
  Sex: Female

DRUGS (5)
  1. ACTEMRA [Suspect]
     Active Substance: TOCILIZUMAB
     Indication: Rheumatoid arthritis
     Route: 065
  2. MELOXICAM [Concomitant]
     Active Substance: MELOXICAM
     Dosage: POW
  3. PREDNISONE [Concomitant]
     Active Substance: PREDNISONE
     Dosage: POW
  4. SIMVASTATIN [Concomitant]
     Active Substance: SIMVASTATIN
     Dosage: POW
  5. SYNTHROID [Concomitant]
     Active Substance: LEVOTHYROXINE SODIUM

REACTIONS (2)
  - Rheumatoid arthritis [Recovered/Resolved]
  - Drug ineffective [Unknown]
